FAERS Safety Report 17424161 (Version 1)
Quarter: 2020Q1

REPORT INFORMATION
  Report Type: Spontaneous
  Country: GB (occurrence: GB)
  Receive Date: 20200217
  Receipt Date: 20200217
  Transmission Date: 20200409
  Serious: Yes (Disabling)
  Sender: FDA-Public Use
  Company Number: GB-TEVA-2020-GB-1185732

PATIENT
  Age: 70 Year
  Sex: Female
  Weight: 93 kg

DRUGS (5)
  1. LOSARTAN. [Concomitant]
     Active Substance: LOSARTAN
     Dosage: 1 DOSAGE FORMS
     Dates: start: 20190821
  2. INDAPAMIDE. [Concomitant]
     Active Substance: INDAPAMIDE
     Dosage: EACH MORNING. 1 DOSAGE FORMS
     Dates: start: 20190821
  3. PRAVASTATIN. [Suspect]
     Active Substance: PRAVASTATIN
     Dosage: AT NIGHT. 10 MG
     Dates: start: 20191209
  4. FLUOXETINE [Concomitant]
     Active Substance: FLUOXETINE HYDROCHLORIDE
     Dosage: 1 DOSAGE FORMS
     Dates: start: 20190821
  5. OMEPRAZOLE. [Concomitant]
     Active Substance: OMEPRAZOLE
     Dosage: 2 DOSAGE FORMS
     Dates: start: 20190821

REACTIONS (5)
  - Pain in extremity [Recovered/Resolved]
  - Arthralgia [Unknown]
  - Insomnia [Unknown]
  - Musculoskeletal pain [Recovered/Resolved]
  - Headache [Recovered/Resolved]

NARRATIVE: CASE EVENT DATE: 20191230
